FAERS Safety Report 13861895 (Version 3)
Quarter: 2018Q3

REPORT INFORMATION
  Report Type: Spontaneous
  Country: US (occurrence: US)
  Receive Date: 20170811
  Receipt Date: 20180820
  Transmission Date: 20181010
  Serious: Yes (Hospitalization, Other)
  Sender: FDA-Public Use
  Company Number: PHHY2017US118138

PATIENT
  Age: 66 Year
  Sex: Male

DRUGS (5)
  1. NALTREXONE [Interacting]
     Active Substance: NALTREXONE
     Dosage: 2 MG,QD
     Route: 065
  2. OXYCODONE [Interacting]
     Active Substance: OXYCODONE
     Indication: MUSCULOSKELETAL PAIN
     Dosage: 5 MG, UNK
     Route: 065
  3. NALOXONE [Interacting]
     Active Substance: NALOXONE
     Indication: UNRESPONSIVE TO STIMULI
     Dosage: 2 MG, UNK
     Route: 042
  4. NALTREXONE [Suspect]
     Active Substance: NALTREXONE
     Indication: BUTTOCK INJURY
     Dosage: 2 MG, QD
     Route: 065
  5. NALOXONE [Interacting]
     Active Substance: NALOXONE
     Indication: COGNITIVE DISORDER
     Dosage: 0.4 MG, QH
     Route: 041

REACTIONS (4)
  - Drug interaction [Unknown]
  - Unresponsive to stimuli [Recovering/Resolving]
  - Depressed level of consciousness [Recovered/Resolved]
  - Cognitive disorder [Recovering/Resolving]
